FAERS Safety Report 9261817 (Version 2)
Quarter: 2013Q3

REPORT INFORMATION
  Report Type: Spontaneous
  Country: FR (occurrence: FR)
  Receive Date: 20130429
  Receipt Date: 20130823
  Transmission Date: 20140515
  Serious: Yes (Hospitalization)
  Sender: FDA-Public Use
  Company Number: FR-B.I. PHARMACEUTICALS,INC./RIDGEFIELD-2013-FF-00631FF

PATIENT
  Age: 86 Year
  Sex: Female
  Weight: 75 kg

DRUGS (7)
  1. PRADAXA [Suspect]
     Indication: ATRIAL FIBRILLATION
     Dosage: 220 MG
     Route: 048
     Dates: start: 20120626, end: 20121124
  2. TAREG [Concomitant]
     Indication: HYPERTENSION
     Dosage: 160 MG
     Route: 048
     Dates: start: 2005
  3. FLECAINE [Concomitant]
     Indication: CARDIAC DISORDER
     Dosage: 100 MG
     Route: 048
     Dates: start: 2009
  4. CRESTOR [Concomitant]
     Indication: DYSLIPIDAEMIA
     Route: 048
     Dates: start: 2005
  5. METFORMINE [Concomitant]
     Indication: TYPE 2 DIABETES MELLITUS
     Route: 048
     Dates: start: 2005
  6. FOSAMAX [Concomitant]
     Indication: SPINAL COMPRESSION FRACTURE
     Route: 048
     Dates: start: 2008
  7. OROCAL D3 [Concomitant]

REACTIONS (4)
  - Cerebral haemorrhage [Recovered/Resolved]
  - Confusional state [Recovered/Resolved]
  - Grand mal convulsion [Recovered/Resolved]
  - Headache [Recovered/Resolved]
